FAERS Safety Report 10284003 (Version 1)
Quarter: 2014Q3

REPORT INFORMATION
  Report Type: Spontaneous
  Country: US (occurrence: None)
  Receive Date: 20140703
  Receipt Date: 20140703
  Transmission Date: 20150326
  Serious: Yes (Hospitalization)
  Sender: FDA-Public Use
  Company Number: None

PATIENT
  Age: 60 Year
  Sex: Male
  Weight: 51.4 kg

DRUGS (13)
  1. BARACLUDE [Concomitant]
     Active Substance: ENTECAVIR
  2. CALCIUM-VITAMIN D [Concomitant]
  3. NYSTATIN. [Concomitant]
     Active Substance: NYSTATIN
  4. TRAZODONE [Concomitant]
     Active Substance: TRAZODONE HYDROCHLORIDE
  5. RIBAVIRIN. [Suspect]
     Active Substance: RIBAVIRIN
     Indication: HEPATITIS C
     Route: 048
     Dates: start: 20140428, end: 20140508
  6. FLUCONAZOLE. [Concomitant]
     Active Substance: FLUCONAZOLE
  7. SOFOSBUVIR [Suspect]
     Active Substance: SOFOSBUVIR
     Indication: HEPATITIS C
     Route: 048
     Dates: start: 20140428, end: 20140508
  8. FUROSEMIDE. [Concomitant]
     Active Substance: FUROSEMIDE
  9. NADOLOL. [Concomitant]
     Active Substance: NADOLOL
  10. TRAMADOL [Concomitant]
     Active Substance: TRAMADOL
  11. METHADONE [Concomitant]
     Active Substance: METHADONE HYDROCHLORIDE
  12. SPIRONOLACTONE. [Concomitant]
     Active Substance: SPIRONOLACTONE
  13. LACTULOSE. [Concomitant]
     Active Substance: LACTULOSE

REACTIONS (3)
  - Urinary tract infection [None]
  - Hydrothorax [None]
  - Failure to thrive [None]

NARRATIVE: CASE EVENT DATE: 20140506
